FAERS Safety Report 21686885 (Version 2)
Quarter: 2022Q4

REPORT INFORMATION
  Report Type: Report from Study
  Country: US (occurrence: US)
  Receive Date: 20221206
  Receipt Date: 20221220
  Transmission Date: 20230112
  Serious: Yes (Other)
  Sender: FDA-Public Use
  Company Number: US-002147023-NVSC2022US279185

PATIENT
  Sex: Male

DRUGS (1)
  1. KESIMPTA [Suspect]
     Active Substance: OFATUMUMAB
     Indication: Multiple sclerosis
     Dosage: 0.4 ML, QMO
     Route: 058

REACTIONS (5)
  - Atrial fibrillation [Unknown]
  - Pruritus [Unknown]
  - Burning sensation [Unknown]
  - Head discomfort [Unknown]
  - Therapeutic response shortened [Unknown]
